FAERS Safety Report 9775186 (Version 1)
Quarter: 2013Q4

REPORT INFORMATION
  Report Type: Report from Study
  Country: CA (occurrence: CA)
  Receive Date: 20131220
  Receipt Date: 20131220
  Transmission Date: 20140711
  Serious: Yes (Other)
  Sender: FDA-Public Use
  Company Number: CA-JNJFOC-20131208988

PATIENT
  Sex: Male
  Weight: 86 kg

DRUGS (5)
  1. REMICADE [Suspect]
     Indication: CROHN^S DISEASE
     Route: 042
     Dates: start: 20130404
  2. RIVAROXABAN [Suspect]
     Indication: PRODUCT USED FOR UNKNOWN INDICATION
     Route: 065
  3. IMURAN [Concomitant]
     Route: 048
  4. IRON SUPPLEMENTS [Concomitant]
     Route: 065
  5. COVERSYL [Concomitant]
     Route: 048

REACTIONS (2)
  - Haematuria [Recovered/Resolved]
  - Haematochezia [Recovered/Resolved]
